FAERS Safety Report 15035034 (Version 1)
Quarter: 2018Q2

REPORT INFORMATION
  Report Type: Spontaneous
  Country: US (occurrence: US)
  Receive Date: 20180620
  Receipt Date: 20180620
  Transmission Date: 20180711
  Serious: Yes (Hospitalization)
  Sender: FDA-Public Use
  Company Number: US-PFIZER INC-2018245729

PATIENT
  Age: 59 Year
  Sex: Female

DRUGS (1)
  1. METHOTREXATE SODIUM. [Suspect]
     Active Substance: METHOTREXATE SODIUM
     Indication: RHEUMATOID ARTHRITIS
     Dosage: 25 MG, WEEKLY

REACTIONS (6)
  - Infection [Unknown]
  - Drug ineffective [Unknown]
  - Skin lesion [Unknown]
  - Condition aggravated [Unknown]
  - Palpitations [Unknown]
  - Skin ulcer [Unknown]
